FAERS Safety Report 6551094-9 (Version None)
Quarter: 2010Q1

REPORT INFORMATION
  Report Type: 
  Country: None (occurrence: None)
  Receive Date: 20100121
  Receipt Date: 20100106
  Transmission Date: 20100710
  Serious: Yes (Hospitalization)
  Sender: FDA-Public Use
  Company Number: 2010000104

PATIENT
  Sex: Female

DRUGS (4)
  1. ERLOTINIB HYDROCHLORIDE [Suspect]
     Indication: OVARIAN CANCER
     Dosage: QD, ORAL
     Route: 048
     Dates: start: 20090717, end: 20091220
  2. BEVACIZUMAB (INJECTION FOR INFUSION) [Suspect]
     Indication: OVARIAN CANCER
     Dosage: INTRAVENOUS
     Route: 042
     Dates: start: 20090717, end: 20091211
  3. CARBOPLATIN [Suspect]
     Indication: OVARIAN CANCER
     Dosage: INTRAVENOUS
     Route: 042
     Dates: start: 20090626, end: 20091009
  4. PACLITAXEL [Suspect]
     Indication: OVARIAN CANCER
     Dosage: 175 MG/M2, INTRAVENOUS
     Route: 042
     Dates: start: 20090626, end: 20091009

REACTIONS (1)
  - VAGINAL LACERATION [None]
